FAERS Safety Report 9917840 (Version 1)
Quarter: 2014Q1

REPORT INFORMATION
  Report Type: Spontaneous
  Country: US (occurrence: US)
  Receive Date: 20140221
  Receipt Date: 20140221
  Transmission Date: 20141002
  Serious: Yes (Hospitalization)
  Sender: FDA-Public Use
  Company Number: US-GLAXOSMITHKLINE-A1060835A

PATIENT
  Age: 57 Year
  Sex: Female

DRUGS (4)
  1. LAMOTRIGINE [Suspect]
     Indication: BIPOLAR DISORDER
  2. LAMICTAL [Suspect]
     Indication: BIPOLAR DISORDER
     Dosage: 50MG PER DAY
     Route: 048
     Dates: start: 20140207
  3. TRAZODONE [Concomitant]
  4. LAMICTAL [Concomitant]

REACTIONS (7)
  - Anaphylactic reaction [Unknown]
  - Loss of consciousness [Unknown]
  - Dyspnoea [Unknown]
  - Swollen tongue [Unknown]
  - Drug ineffective [Not Recovered/Not Resolved]
  - Mania [Not Recovered/Not Resolved]
  - Headache [Not Recovered/Not Resolved]
